FAERS Safety Report 4742987-3 (Version None)
Quarter: 2005Q3

REPORT INFORMATION
  Report Type: 
  Country: None (occurrence: None)
  Receive Date: 20050811
  Receipt Date: 20050803
  Transmission Date: 20060218
  Serious: Yes (Other)
  Sender: FDA-Public Use
  Company Number: PHNR2005AU01213

PATIENT
  Sex: Female

DRUGS (2)
  1. TEGRETOL [Suspect]
     Indication: PAIN
     Dosage: 200MG MANE, 200MG LUNCHTIME, 600MG NOCTE
     Dates: start: 20050301
  2. LEXAPRO [Concomitant]
     Indication: DEPRESSION
     Dosage: 20 MG, MANE

REACTIONS (4)
  - DEPRESSION [None]
  - DERMATITIS ALLERGIC [None]
  - FLUSHING [None]
  - RASH [None]
